FAERS Safety Report 20160045 (Version 3)
Quarter: 2022Q2

REPORT INFORMATION
  Report Type: Report from Study
  Country: US (occurrence: US)
  Receive Date: 20211208
  Receipt Date: 20220617
  Transmission Date: 20220721
  Serious: Yes (Other)
  Sender: FDA-Public Use
  Company Number: US-Ipsen Biopharmaceuticals, Inc.-2021-30690

PATIENT
  Age: 78 Year
  Sex: Male

DRUGS (1)
  1. SOMATULINE DEPOT [Suspect]
     Active Substance: LANREOTIDE ACETATE
     Indication: Metastatic carcinoid tumour
     Dosage: 120 MG, EVERY 4 WEEKS
     Route: 058
     Dates: start: 202002

REACTIONS (7)
  - Disease progression [Recovering/Resolving]
  - Prostate cancer [Recovering/Resolving]
  - Gastrointestinal disorder [Recovering/Resolving]
  - Memory impairment [Unknown]
  - Diarrhoea [Recovering/Resolving]
  - Drug ineffective [Unknown]
  - Drug ineffective [Unknown]

NARRATIVE: CASE EVENT DATE: 20220501
